FAERS Safety Report 6438941-6 (Version None)
Quarter: 2009Q4

REPORT INFORMATION
  Report Type: 
  Country: None (occurrence: None)
  Receive Date: 20091111
  Receipt Date: 20091111
  Transmission Date: 20100525
  Serious: Yes (Other)
  Sender: FDA-Public Use
  Company Number: None

PATIENT
  Age: 60 Year
  Sex: Female

DRUGS (1)
  1. CLONIDINE [Suspect]
     Indication: BLOOD PRESSURE
     Dosage: 0.1 DAILY APPLY ONE WEEKLY
     Dates: start: 20091101, end: 20091109

REACTIONS (1)
  - PRODUCT ADHESION ISSUE [None]
